FAERS Safety Report 14360914 (Version 1)
Quarter: 2018Q1

REPORT INFORMATION
  Report Type: Spontaneous
  Country: US (occurrence: US)
  Receive Date: 20180105
  Receipt Date: 20180105
  Transmission Date: 20180509
  Serious: No
  Sender: FDA-Public Use
  Company Number: None

PATIENT
  Age: 44 Year
  Sex: Female

DRUGS (1)
  1. HUMIRA [Suspect]
     Active Substance: ADALIMUMAB
     Indication: PRODUCT USED FOR UNKNOWN INDICATION
     Dosage: 40 MG EVERY 10 DAYS SUBCUTANEOUSLY
     Route: 058
     Dates: start: 20171018

REACTIONS (2)
  - Skin exfoliation [None]
  - Rash [None]

NARRATIVE: CASE EVENT DATE: 20171228
